FAERS Safety Report 4817206-X (Version None)
Quarter: 2005Q4

REPORT INFORMATION
  Report Type: 
  Country: None (occurrence: None)
  Receive Date: 20051101
  Receipt Date: 20051027
  Transmission Date: 20060501
  Serious: Yes (Other)
  Sender: FDA-Public Use
  Company Number: US-JNJFOC-20051006036

PATIENT
  Sex: Male

DRUGS (3)
  1. LEVAQUIN [Suspect]
     Indication: PNEUMONIA
     Route: 042
     Dates: start: 20050915, end: 20050918
  2. SOLU-MEDROL [Concomitant]
  3. PREDNISONE [Concomitant]

REACTIONS (1)
  - DIABETES MELLITUS [None]
